FAERS Safety Report 4851851-0 (Version None)
Quarter: 2005Q4

REPORT INFORMATION
  Report Type: 
  Country: None (occurrence: None)
  Receive Date: 20051209
  Receipt Date: 20051205
  Transmission Date: 20060501
  Serious: Yes (Hospitalization, Other)
  Sender: FDA-Public Use
  Company Number: 163-20785-05080184

PATIENT
  Age: 69 Year
  Sex: Female
  Weight: 75.7507 kg

DRUGS (5)
  1. THALOMID [Suspect]
     Indication: MULTIPLE MYELOMA
     Dosage: 150 MG, DAILY, ORAL
     Route: 048
     Dates: start: 20050628, end: 20050815
  2. ALLERGRA (FEXOFENDINE HYDROCHLORIDE) [Concomitant]
  3. PROZAC [Concomitant]
  4. TRAZODONE HCL [Concomitant]
  5. MOTRIN [Concomitant]

REACTIONS (14)
  - ATRIAL SEPTAL DEFECT [None]
  - BENIGN CARDIAC NEOPLASM [None]
  - BRADYCARDIA [None]
  - BRONCHITIS [None]
  - CHRONIC SINUSITIS [None]
  - DEHYDRATION [None]
  - DIARRHOEA [None]
  - DIZZINESS [None]
  - FIBROMA [None]
  - PROTHROMBIN TIME PROLONGED [None]
  - SEDATION [None]
  - STREPTOCOCCAL INFECTION [None]
  - URINARY TRACT INFECTION [None]
  - WHEEZING [None]
